FAERS Safety Report 4960489-6 (Version None)
Quarter: 2006Q2

REPORT INFORMATION
  Report Type: 
  Country: None (occurrence: None)
  Receive Date: 20060403
  Receipt Date: 20060323
  Transmission Date: 20061013
  Serious: Yes (Other)
  Sender: FDA-Public Use
  Company Number: GB-JNJFOC-20060302242

PATIENT
  Age: 33 Year
  Sex: Female
  Weight: 70 kg

DRUGS (2)
  1. HALOPERIDOL [Suspect]
     Route: 048
  2. HALOPERIDOL [Suspect]
     Indication: MENTAL DISORDER
     Route: 048

REACTIONS (2)
  - CORNEAL DISORDER [None]
  - GALACTORRHOEA [None]
